FAERS Safety Report 6433372-7 (Version None)
Quarter: 2009Q4

REPORT INFORMATION
  Report Type: 
  Country: None (occurrence: None)
  Receive Date: 20091105
  Receipt Date: 20091021
  Transmission Date: 20100525
  Serious: Yes (Hospitalization)
  Sender: FDA-Public Use
  Company Number: WAES 0808USA01042

PATIENT
  Age: 44 Year
  Sex: Male
  Weight: 84.8226 kg

DRUGS (25)
  1. ISENTRESS [Suspect]
     Dosage: 400 MG/BID/PO
     Route: 048
     Dates: start: 20080714
  2. DARUNAVIR 600 MG [Suspect]
     Dosage: 600 MG/BID/PO
     Route: 048
     Dates: start: 20080714
  3. MARAVIROC 150 MG [Suspect]
     Dosage: 150 MG/BID/PO
     Route: 048
     Dates: start: 20080714
  4. NORVIR [Suspect]
     Dosage: 100 MG/BID/PO
     Route: 048
     Dates: start: 20080714
  5. EMTRICITABINE AND TENOFOVIR DISOPROXIL FUMARATE [Suspect]
     Dosage: 500 MG/DAILY/PO
     Route: 048
     Dates: start: 20080714
  6. AMBIEN CR [Concomitant]
  7. APHTHASOL [Concomitant]
  8. BENADRYL [Concomitant]
  9. CIALIS [Concomitant]
  10. DIFLUCAN [Concomitant]
  11. IBU-TAB [Concomitant]
  12. MIRALAX [Concomitant]
  13. NASONEX [Concomitant]
  14. NEXIUM [Concomitant]
  15. PAXIL [Concomitant]
  16. PERIDEX (CHLORHEXIDINE GLUCONATE [Concomitant]
  17. TENORMIN [Concomitant]
  18. VALCYTE [Concomitant]
  19. WELLBUTRIN XL [Concomitant]
  20. ANTIOXIDANTS (UNSPECIFIED) (+) B [Concomitant]
  21. CALCIUM (UNSPECIFIED) (+) MAGNES [Concomitant]
  22. CYANOCOBALAMIN [Concomitant]
  23. DAPSONE [Concomitant]
  24. NYSTATIN (+) TRIAMCINOLONE ACETO [Concomitant]
  25. TESTOSTERONE CYPIONATE [Concomitant]

REACTIONS (4)
  - CHOLECYSTITIS [None]
  - ILEITIS [None]
  - MYCOBACTERIUM AVIUM COMPLEX IMMUNE RESTORATION DISEASE [None]
  - OSTEONECROSIS [None]
